FAERS Safety Report 8410055-5 (Version None)
Quarter: 2012Q2

REPORT INFORMATION
  Report Type: 
  Country: None (occurrence: None)
  Receive Date: 20120605
  Receipt Date: 20120530
  Transmission Date: 20120825
  Serious: Yes (Hospitalization)
  Sender: FDA-Public Use
  Company Number: US-BAYER-2011-070925

PATIENT
  Age: 20 Year
  Sex: Female
  Weight: 63.492 kg

DRUGS (5)
  1. YASMIN [Suspect]
  2. RELPAX [Concomitant]
     Dosage: UNK
  3. YASMIN [Suspect]
     Indication: PREMENSTRUAL SYNDROME
  4. YASMIN [Suspect]
     Indication: CONTRACEPTION
     Dosage: UNK
     Dates: start: 20020101, end: 20061222
  5. YASMIN [Suspect]
     Indication: ACNE
     Dosage: UNK
     Dates: start: 20030101, end: 20061222

REACTIONS (8)
  - PAIN IN EXTREMITY [None]
  - ANHEDONIA [None]
  - PSYCHOLOGICAL TRAUMA [None]
  - GAIT DISTURBANCE [None]
  - DEEP VEIN THROMBOSIS [None]
  - ANXIETY [None]
  - INJURY [None]
  - FEAR [None]
